FAERS Safety Report 20737897 (Version 1)
Quarter: 2022Q2

REPORT INFORMATION
  Report Type: Spontaneous
  Country: CA (occurrence: CA)
  Receive Date: 20220422
  Receipt Date: 20220422
  Transmission Date: 20220721
  Serious: Yes (Other)
  Sender: FDA-Public Use
  Company Number: CA-TEVA-2022-CA-2028663

PATIENT
  Age: 47 Year
  Sex: Female
  Weight: 95 kg

DRUGS (57)
  1. CEPHALEXIN [Suspect]
     Active Substance: CEPHALEXIN
     Indication: Product used for unknown indication
     Route: 065
  2. CEPHALEXIN [Suspect]
     Active Substance: CEPHALEXIN
     Route: 065
  3. CIPROFLOXACIN [Suspect]
     Active Substance: CIPROFLOXACIN
     Indication: Product used for unknown indication
     Route: 065
  4. CLINDAMYCIN [Suspect]
     Active Substance: CLINDAMYCIN
     Indication: Product used for unknown indication
     Route: 065
  5. CODEINE [Suspect]
     Active Substance: CODEINE
     Indication: Product used for unknown indication
     Route: 065
  6. ENALAPRIL [Suspect]
     Active Substance: ENALAPRIL
     Indication: Product used for unknown indication
     Route: 065
  7. ENALAPRIL [Suspect]
     Active Substance: ENALAPRIL
     Route: 065
  8. HYDROCHLOROTHIAZIDE [Suspect]
     Active Substance: HYDROCHLOROTHIAZIDE
     Indication: Product used for unknown indication
     Route: 065
  9. HYDROCHLOROTHIAZIDE [Suspect]
     Active Substance: HYDROCHLOROTHIAZIDE
     Route: 065
  10. HYDROCHLOROTHIAZIDE [Suspect]
     Active Substance: HYDROCHLOROTHIAZIDE
     Route: 065
  11. IRON SUCROSE [Suspect]
     Active Substance: IRON SUCROSE
     Indication: Product used for unknown indication
     Route: 065
  12. LOSARTAN [Suspect]
     Active Substance: LOSARTAN
     Indication: Product used for unknown indication
     Route: 065
  13. LOSARTAN [Suspect]
     Active Substance: LOSARTAN
     Route: 065
  14. METHOTREXATE [Suspect]
     Active Substance: METHOTREXATE
     Indication: Product used for unknown indication
     Route: 058
  15. METHOTREXATE [Suspect]
     Active Substance: METHOTREXATE
     Route: 065
  16. METHOTREXATE [Suspect]
     Active Substance: METHOTREXATE
     Route: 058
  17. METHOTREXATE [Suspect]
     Active Substance: METHOTREXATE
     Route: 065
  18. METOPROLOL TARTRATE [Suspect]
     Active Substance: METOPROLOL TARTRATE
     Indication: Product used for unknown indication
     Route: 065
  19. METOPROLOL TARTRATE [Suspect]
     Active Substance: METOPROLOL TARTRATE
     Route: 065
  20. METOPROLOL TARTRATE [Suspect]
     Active Substance: METOPROLOL TARTRATE
     Route: 065
  21. METOPROLOL TARTRATE [Suspect]
     Active Substance: METOPROLOL TARTRATE
     Route: 065
  22. MOXIFLOXACIN HYDROCHLORIDE [Suspect]
     Active Substance: MOXIFLOXACIN HYDROCHLORIDE
     Indication: Product used for unknown indication
     Route: 065
  23. PANTOPRAZOLE MAGNESIUM [Suspect]
     Active Substance: PANTOPRAZOLE MAGNESIUM
     Indication: Product used for unknown indication
     Route: 065
  24. XELJANZ [Suspect]
     Active Substance: TOFACITINIB CITRATE
     Indication: Rheumatoid arthritis
     Dosage: 100 MILLIGRAM DAILY;
     Route: 048
  25. PANTOPRAZOLE MAGNESIUM [Suspect]
     Active Substance: PANTOPRAZOLE MAGNESIUM
     Indication: Product used for unknown indication
     Route: 065
  26. PLAQUENIL [Suspect]
     Active Substance: HYDROXYCHLOROQUINE SULFATE
     Indication: Product used for unknown indication
     Route: 065
  27. PLAQUENIL [Suspect]
     Active Substance: HYDROXYCHLOROQUINE SULFATE
     Route: 065
  28. PENICILLIN G 2-AMINO-4-METHOXY-6-METHYLPYRIMIDINE [Suspect]
     Active Substance: PENICILLIN G 2-AMINO-4-METHOXY-6-METHYLPYRIMIDINE
     Indication: Product used for unknown indication
     Route: 065
  29. PENICILLIN G [Suspect]
     Active Substance: PENICILLIN G
     Indication: Product used for unknown indication
     Route: 065
  30. RABEPRAZOLE SODIUM [Suspect]
     Active Substance: RABEPRAZOLE SODIUM
     Indication: Product used for unknown indication
     Route: 065
  31. ORENCIA [Suspect]
     Active Substance: ABATACEPT
     Indication: Product used for unknown indication
     Route: 065
  32. ORENCIA [Suspect]
     Active Substance: ABATACEPT
     Route: 042
  33. LEVOTHYROXINE SODIUM [Suspect]
     Active Substance: LEVOTHYROXINE SODIUM
     Indication: Product used for unknown indication
     Route: 065
  34. LEVAQUIN [Suspect]
     Active Substance: LEVOFLOXACIN
     Indication: Product used for unknown indication
     Route: 065
  35. ISONIAZID [Suspect]
     Active Substance: ISONIAZID
     Indication: Product used for unknown indication
     Route: 065
  36. HYDROXYCHLOROQUINE SULFATE [Suspect]
     Active Substance: HYDROXYCHLOROQUINE SULFATE
     Indication: Product used for unknown indication
     Route: 065
  37. HYDRALAZINE HYDROCHLORIDE [Suspect]
     Active Substance: HYDRALAZINE HYDROCHLORIDE
     Indication: Product used for unknown indication
     Route: 065
  38. GLICLAZIDE [Suspect]
     Active Substance: GLICLAZIDE
     Indication: Product used for unknown indication
     Route: 065
  39. FOSAMAX [Suspect]
     Active Substance: ALENDRONATE SODIUM
     Indication: Product used for unknown indication
     Route: 065
  40. ENBREL [Suspect]
     Active Substance: ETANERCEPT
     Indication: Rheumatoid arthritis
     Route: 058
  41. ENBREL [Suspect]
     Active Substance: ETANERCEPT
     Route: 065
  42. CELEBREX [Suspect]
     Active Substance: CELECOXIB
     Indication: Product used for unknown indication
     Route: 065
  43. BIAXIN [Suspect]
     Active Substance: CLARITHROMYCIN
     Indication: Product used for unknown indication
     Route: 065
  44. ATENOLOL [Suspect]
     Active Substance: ATENOLOL
     Indication: Product used for unknown indication
     Route: 065
  45. ARAVA [Suspect]
     Active Substance: LEFLUNOMIDE
     Indication: Rheumatoid arthritis
     Route: 065
  46. ATENOLOL [Concomitant]
     Active Substance: ATENOLOL
     Route: 065
  47. COLCHICINE [Concomitant]
     Active Substance: COLCHICINE
     Indication: Product used for unknown indication
     Route: 065
  48. PERINDOPRIL [Concomitant]
     Active Substance: PERINDOPRIL
     Indication: Product used for unknown indication
     Route: 065
  49. ESOMEPRAZOLE MAGNESIUM [Concomitant]
     Active Substance: ESOMEPRAZOLE MAGNESIUM
     Indication: Abdominal discomfort
     Route: 065
  50. GOLD [Concomitant]
     Active Substance: GOLD
     Indication: Product used for unknown indication
     Route: 065
  51. HYDROXYCHLOROQUINE [Concomitant]
     Active Substance: HYDROXYCHLOROQUINE
     Indication: Product used for unknown indication
     Route: 065
  52. IRON SUCROSE [Concomitant]
     Active Substance: IRON SUCROSE
     Route: 065
  53. LEUCOVORIN [Concomitant]
     Active Substance: LEUCOVORIN
     Indication: Product used for unknown indication
     Route: 065
  54. PREDNISONE [Concomitant]
     Active Substance: PREDNISONE
     Indication: Product used for unknown indication
     Route: 065
  55. PREDNISONE [Concomitant]
     Active Substance: PREDNISONE
     Dosage: 8.5 MILLIGRAM DAILY;
     Route: 065
  56. RANITIDINE [Concomitant]
     Active Substance: RANITIDINE
     Route: 065
  57. SACCHARATED IRON OXIDE [Concomitant]
     Active Substance: IRON SUCROSE
     Indication: Product used for unknown indication
     Route: 065

REACTIONS (23)
  - Abdominal discomfort [Unknown]
  - Abdominal pain upper [Unknown]
  - Arthralgia [Unknown]
  - Cardiac failure [Unknown]
  - Cardiac failure congestive [Unknown]
  - Cough [Unknown]
  - Diarrhoea [Unknown]
  - Drug hypersensitivity [Unknown]
  - Dyspnoea [Unknown]
  - Gastric disorder [Unknown]
  - Headache [Unknown]
  - Hepatic steatosis [Unknown]
  - Hypertension [Unknown]
  - Loss of employment [Unknown]
  - Malaise [Unknown]
  - Nausea [Unknown]
  - Rash [Unknown]
  - Therapeutic product effect decreased [Unknown]
  - Off label use [Unknown]
  - Product use issue [Unknown]
  - Contraindicated product administered [Unknown]
  - Drug ineffective [Unknown]
  - Drug intolerance [Unknown]
